FAERS Safety Report 8445822-5 (Version None)
Quarter: 2012Q2

REPORT INFORMATION
  Report Type: 
  Country: None (occurrence: None)
  Receive Date: 20120618
  Receipt Date: 20120611
  Transmission Date: 20120825
  Serious: Yes (Disabling)
  Sender: FDA-Public Use
  Company Number: PHHY2012FR050577

PATIENT
  Sex: Male

DRUGS (6)
  1. LASIX [Concomitant]
     Dosage: 40 MG, QD
  2. XANAX [Concomitant]
     Dosage: 0.25 MG, QD
  3. PREDNISONE TAB [Concomitant]
     Dosage: 5 MG, QD
  4. CERTICAN [Suspect]
     Dosage: 2.25 MG, BID
     Route: 048
     Dates: start: 20110201
  5. ESOMEPRAZOLE [Concomitant]
     Dosage: 40 MG, QD
  6. PERINDOPRIL ERBUMINE [Concomitant]
     Dosage: 5 MG, QD

REACTIONS (5)
  - TERATOSPERMIA [None]
  - HYPOSPERMIA [None]
  - SPERMATOZOA PROGRESSIVE MOTILITY DECREASED [None]
  - TESTICULAR DISORDER [None]
  - ASTHENOSPERMIA [None]
